FAERS Safety Report 14906929 (Version 1)
Quarter: 2018Q2

REPORT INFORMATION
  Report Type: Spontaneous
  Country: DK (occurrence: DK)
  Receive Date: 20180517
  Receipt Date: 20180517
  Transmission Date: 20180711
  Serious: Yes (Disabling)
  Sender: FDA-Public Use
  Company Number: DK-TEVA-2018-DK-893504

PATIENT
  Age: 27 Year
  Sex: Male

DRUGS (1)
  1. ISOTRETINOIN ^ACTAVIS^ [Suspect]
     Active Substance: ISOTRETINOIN
     Indication: ACNE
     Dosage: 40 MILLIGRAM DAILY; STYRKE: 20 MG.
     Route: 048
     Dates: start: 20151014

REACTIONS (3)
  - Dacryocystorhinostomy [Recovered/Resolved]
  - Eye irritation [Not Recovered/Not Resolved]
  - Dry eye [Not Recovered/Not Resolved]

NARRATIVE: CASE EVENT DATE: 201510
